FAERS Safety Report 8776849 (Version 2)
Quarter: 2012Q4

REPORT INFORMATION
  Report Type: Report from Study
  Country: ES (occurrence: ES)
  Receive Date: 20120911
  Receipt Date: 20120921
  Transmission Date: 20130627
  Serious: Yes (Death, Hospitalization)
  Sender: FDA-Public Use
  Company Number: ES-AMGEN-ESPCT2012056932

PATIENT
  Age: 70 Year
  Sex: Female

DRUGS (8)
  1. PANITUMUMAB [Suspect]
     Indication: COLORECTAL CANCER
     Dosage: 370 mg, q2wk
     Route: 042
     Dates: start: 20120424, end: 20120625
  2. OXALIPLATIN [Concomitant]
     Indication: COLORECTAL CANCER
     Dosage: 83 mg, q2wk
     Route: 042
     Dates: start: 20120424, end: 20120709
  3. FOLINIC ACID [Concomitant]
     Indication: COLORECTAL CANCER
     Dosage: 660 mg, q2wk
     Route: 042
     Dates: start: 20120424, end: 20120723
  4. 5-FU [Concomitant]
     Indication: COLORECTAL CANCER
     Dosage: UNK UNK, q2wk
     Route: 042
     Dates: start: 20120424, end: 20120723
  5. CELESTODERM V [Concomitant]
     Dosage: UNK UNK, q12h
     Route: 061
     Dates: start: 20120727
  6. DACORTIN [Concomitant]
     Dosage: 30 mg, qd
     Route: 048
     Dates: start: 20120727
  7. DOXYCYCLINE [Concomitant]
     Dosage: 100 mg, q12h
     Route: 048
  8. VASELINE [Concomitant]

REACTIONS (1)
  - Necrotising fasciitis [Fatal]
